FAERS Safety Report 6587452 (Version 3)
Quarter: 2013Q2

REPORT INFORMATION
  Report Type: Spontaneous
  Country: TW (occurrence: TW)
  Receive Date: 20080318
  Receipt Date: 20130409
  Transmission Date: 20140414
  Serious: Yes (Hospitalization, Other)
  Sender: FDA-Public Use
  Company Number: TW-PFIZER INC-2008023600

PATIENT
  Age: 57 Year
  Sex: Female

DRUGS (4)
  1. GABAPENTIN [Suspect]
     Indication: DYSAESTHESIA
     Dosage: 600 MG, AS NEEDED
  2. ACARBOSE [Concomitant]
     Indication: BLOOD GLUCOSE
     Dosage: UNK
  3. GLIMEPIRIDE [Concomitant]
     Indication: BLOOD GLUCOSE
     Dosage: UNK
  4. ROSIGLITAZONE [Concomitant]
     Indication: BLOOD GLUCOSE
     Dosage: UNK

REACTIONS (8)
  - Dizziness [Recovered/Resolved]
  - Vomiting [Recovered/Resolved]
  - Altered state of consciousness [Recovered/Resolved]
  - Toxicity to various agents [Recovered/Resolved]
  - Lethargy [Recovered/Resolved]
  - Somnolence [Recovered/Resolved]
  - Blood pressure increased [Recovered/Resolved]
  - Off label use [Unknown]
